FAERS Safety Report 5104526-7 (Version None)
Quarter: 2006Q3

REPORT INFORMATION
  Report Type: 
  Country: None (occurrence: None)
  Receive Date: 20060914
  Receipt Date: 20060905
  Transmission Date: 20061208
  Serious: Yes (Death)
  Sender: FDA-Public Use
  Company Number: US-JNJFOC-20060902671

PATIENT
  Age: 50 Year
  Sex: Female

DRUGS (6)
  1. CYCLOBENZAPRINE HCL [Suspect]
     Indication: SUICIDE ATTEMPT
     Route: 048
  2. ACETAMINOPHEN [Suspect]
     Route: 048
  3. ACETAMINOPHEN [Suspect]
     Indication: SUICIDE ATTEMPT
     Route: 048
  4. HYDROCODONE BITARTRATE [Suspect]
     Indication: SUICIDE ATTEMPT
  5. COCAINE [Suspect]
     Indication: SUICIDE ATTEMPT
  6. HYDROMORPHONE HCL [Suspect]
     Indication: SUICIDE ATTEMPT

REACTIONS (4)
  - COMPLETED SUICIDE [None]
  - DRUG TOXICITY [None]
  - INTENTIONAL DRUG MISUSE [None]
  - LOSS OF CONSCIOUSNESS [None]
